FAERS Safety Report 24135061 (Version 1)
Quarter: 2024Q3

REPORT INFORMATION
  Report Type: Spontaneous
  Country: CA (occurrence: CA)
  Receive Date: 20240725
  Receipt Date: 20240725
  Transmission Date: 20241017
  Serious: Yes (Hospitalization, Other)
  Sender: BRISTOL MYERS SQUIBB
  Company Number: CA-BRISTOL-MYERS SQUIBB COMPANY-2024-117334

PATIENT
  Age: 67 Year
  Sex: Male

DRUGS (2)
  1. ABRAXANE [Suspect]
     Active Substance: PACLITAXEL
     Indication: Product used for unknown indication
     Dosage: POWDER FOR SUSPENSION INTRAVENOUS
  2. GEMCITABINE [Concomitant]
     Active Substance: GEMCITABINE

REACTIONS (4)
  - Capillary leak syndrome [Unknown]
  - Generalised oedema [Unknown]
  - Pleural effusion [Unknown]
  - Hospitalisation [Unknown]
